FAERS Safety Report 8623619-0 (Version None)
Quarter: 2012Q3

REPORT INFORMATION
  Report Type: 
  Country: None (occurrence: None)
  Receive Date: 20120827
  Receipt Date: 20120815
  Transmission Date: 20120928
  Serious: Yes (Hospitalization, Other)
  Sender: FDA-Public Use
  Company Number: US-ELI_LILLY_AND_COMPANY-US201009001925

PATIENT
  Sex: Female
  Weight: 65.6 kg

DRUGS (13)
  1. ALIGN [Concomitant]
     Indication: PROPHYLAXIS
     Dosage: UNK
  2. CALCIUM [Concomitant]
     Dosage: UNK
  3. FORTEO [Suspect]
     Indication: OSTEOPOROSIS
     Dosage: 20 UG, DAILY (1/D)
     Dates: start: 20100701
  4. PREDNISONE TAB [Concomitant]
     Dosage: 7 MG, QD
  5. FLUOXETINE HCL [Concomitant]
     Indication: DEPRESSION
     Dosage: 20 MG, QD
  6. TRAMADOL HCL [Concomitant]
     Indication: PAIN
     Dosage: 50 MG, BID
  7. TRAZODONE HCL [Concomitant]
     Indication: ANXIETY
     Dosage: 50 MG, QD
  8. RITUXIMAB [Concomitant]
     Indication: RHEUMATOID ARTHRITIS
     Dosage: UNK
  9. WARFARIN SODIUM [Suspect]
     Dosage: 4 MG, QD
  10. FESOTERODINE FUMARATE [Concomitant]
     Indication: BLADDER DISORDER
     Dosage: 20 MG, QD
  11. DIOVAN [Concomitant]
     Indication: HYPERTENSION
     Dosage: 80 MG, BID
  12. RANITIDINE [Concomitant]
     Indication: GASTROOESOPHAGEAL REFLUX DISEASE
     Dosage: UNK
  13. CHOLESTYRAMINE [Concomitant]
     Dosage: UNK

REACTIONS (6)
  - HIP FRACTURE [None]
  - PAIN IN EXTREMITY [None]
  - FALL [None]
  - BONE PAIN [None]
  - FEMUR FRACTURE [None]
  - DIZZINESS [None]
